FAERS Safety Report 7940960-5 (Version None)
Quarter: 2011Q4

REPORT INFORMATION
  Report Type: 
  Country: None (occurrence: None)
  Receive Date: 20111128
  Receipt Date: 20111117
  Transmission Date: 20120403
  Serious: Yes (Hospitalization)
  Sender: FDA-Public Use
  Company Number: PHHO2011JP15610

PATIENT
  Sex: Female
  Weight: 82 kg

DRUGS (20)
  1. METFORMIN HCL [Suspect]
     Dosage: 750 MG, UNK
     Route: 048
     Dates: start: 20110713
  2. LEVOTHYROXINE SODIUM [Concomitant]
     Dosage: 25 UG, UNK
     Route: 048
     Dates: start: 20080904
  3. ALLEGRA [Concomitant]
     Dosage: 120 MG, UNK
     Route: 048
     Dates: start: 20110822, end: 20110911
  4. LANTUS [Concomitant]
     Indication: TYPE 2 DIABETES MELLITUS
     Dosage: 6 IU, UNK
     Route: 058
     Dates: start: 20090715
  5. ASTAT [Concomitant]
     Dosage: UNK
     Route: 061
     Dates: start: 20080723
  6. PLACEBO [Suspect]
     Dosage: DOUBLE BLINDED
     Route: 048
     Dates: start: 20091021
  7. NORVASC [Suspect]
     Dosage: 10 MG, UNK
     Route: 048
     Dates: start: 20090415
  8. BOUFUUTSUUSHOUSAN [Suspect]
     Dosage: 5 G, UNK
     Route: 048
     Dates: start: 20080328
  9. HYALEIN [Concomitant]
     Dosage: UNK
     Route: 047
     Dates: start: 20110415
  10. PLACEBO [Suspect]
     Indication: CARDIOVASCULAR DISORDER
     Dosage: DOUBLE BLINDED
     Route: 048
     Dates: start: 20080723, end: 20080824
  11. METFORMIN HCL [Concomitant]
     Indication: TYPE 2 DIABETES MELLITUS
     Dosage: 750 MG, UNK
     Route: 048
     Dates: start: 20030624
  12. MICARDIS [Suspect]
     Dosage: 80 MG, UNK
     Route: 048
     Dates: start: 20080328
  13. DOXAZOSIN MESYLATE [Suspect]
     Dosage: 2 MG, UNK
     Route: 048
     Dates: start: 20060719
  14. ALLOPURINOL [Concomitant]
     Dosage: 200 MG, UNK
     Route: 048
     Dates: start: 20050805
  15. MYSER [Concomitant]
     Dosage: UNK
     Route: 062
     Dates: start: 20110822, end: 20111031
  16. HIRUDOID [Concomitant]
     Dosage: UNK
     Route: 062
     Dates: start: 20110829, end: 20111005
  17. PLACEBO [Suspect]
     Dosage: DOUBLE BLINDED
     Route: 048
     Dates: start: 20080825, end: 20090821
  18. MIGLITOL [Suspect]
     Dosage: 225 MG, UNK
     Route: 048
     Dates: start: 20070406
  19. PLACEBO [Suspect]
     Dosage: DOUBLE BLINDED
     Route: 048
     Dates: start: 20090831, end: 20091020
  20. SANCOBA [Concomitant]
     Dosage: UNK
     Route: 047
     Dates: start: 20040227

REACTIONS (2)
  - GASTRIC ULCER [None]
  - COLONIC POLYP [None]
